FAERS Safety Report 22270013 (Version 1)
Quarter: 2023Q2

REPORT INFORMATION
  Report Type: Spontaneous
  Country: GB (occurrence: GB)
  Receive Date: 20230501
  Receipt Date: 20230501
  Transmission Date: 20230721
  Serious: Yes (Disabling, Other)
  Sender: FDA-Public Use
  Company Number: GB-ANIPHARMA-2023-UK-000130

PATIENT
  Sex: Female

DRUGS (65)
  1. CANDESARTAN [Suspect]
     Active Substance: CANDESARTAN
     Indication: Product used for unknown indication
     Dosage: 2 MG
     Route: 065
  2. ASACOL [Suspect]
     Active Substance: MESALAMINE
     Dosage: 4.8 G DAILY / 3 DF BID / 2.4 G DAILY / 6 DF QID / 3 G DAILY
     Route: 065
     Dates: start: 20161001
  3. BUDESONIDE [Suspect]
     Active Substance: BUDESONIDE
     Dosage: 8 DF Q8WK
     Route: 048
  4. COMIRNATY [Suspect]
     Active Substance: TOZINAMERAN
     Dosage: DOSE TEXT: DOSE 3
     Route: 065
     Dates: start: 20220322
  5. ENTYVIO [Suspect]
     Active Substance: VEDOLIZUMAB
     Dosage: DOSE TEXT: UNK(DOSE FORM:200) / DOSE TEXT: 200 UNK
     Route: 042
     Dates: start: 2017, end: 2017
  6. HYDROCORTISONE [Suspect]
     Active Substance: HYDROCORTISONE
     Dosage: 8 DF Q8WK / 1 DF QID
     Route: 048
     Dates: start: 201807
  7. MESALAMINE [Suspect]
     Active Substance: MESALAMINE
     Dosage: DOSE TEXT: UNK / DOSE TEXT: UNK / DOSE TEXT: 4.8 GRAM, QD / DOSE TEXT: 3 DOSAGE FORM, BID / DOSE TEX
     Route: 065
     Dates: start: 20170101, end: 20170901
  8. MESALAMINE [Suspect]
     Active Substance: MESALAMINE
     Route: 048
     Dates: start: 201601, end: 201610
  9. VEDOLIZUMAB [Suspect]
     Active Substance: VEDOLIZUMAB
     Dosage: DOSE TEXT: 1 DOSAGE FORM, QD
     Route: 065
  10. WARFARIN [Suspect]
     Active Substance: WARFARIN
     Route: 065
     Dates: start: 2009
  11. WARFARIN SODIUM [Suspect]
     Active Substance: WARFARIN SODIUM
     Dosage: DOSE TEXT: UNK / DOSE TEXT: 1 DOSAGE FORM, QD / DOSE TEXT: 8 DOSAGE FORM, Q8WK / DOSE TEXT: UNK
     Route: 048
     Dates: start: 2019
  12. COVID-19 VACCINE NOS [Suspect]
     Active Substance: COVID-19 VACCINE NOS
     Dosage: 0.5 ML UNK; DOSE TEXT: DOSE 2
     Route: 030
     Dates: start: 20210713
  13. ADALIMUMAB [Suspect]
     Active Substance: ADALIMUMAB
     Dosage: 8 DF UNK
     Route: 048
     Dates: start: 201707
  14. INFLIXIMAB [Suspect]
     Active Substance: INFLIXIMAB
     Dosage: DOSE TEXT: UNK, Q8WK / DOSE TEXT: 5 MILLIGRAM/KILOGRAM, Q8WK / DOSE TEXT: UNK / DOSE TEXT: 5 MILLIGR
     Route: 042
     Dates: start: 20170101, end: 20170901
  15. PREDNISONE [Suspect]
     Active Substance: PREDNISONE
     Dosage: DOSE TEXT: 50 MILLIGRAM / DOSE TEXT: UNK
     Route: 065
     Dates: start: 2017
  16. SULFASALAZINE [Suspect]
     Active Substance: SULFASALAZINE
     Route: 065
     Dates: start: 20090101, end: 20160101
  17. ALBENDAZOLE [Suspect]
     Active Substance: ALBENDAZOLE
     Route: 042
     Dates: start: 2017, end: 2017
  18. EPINEPHRINE [Suspect]
     Active Substance: EPINEPHRINE
     Route: 065
  19. ASPIRIN [Suspect]
     Active Substance: ASPIRIN
     Dosage: DOSE TEXT: MORNING
     Route: 065
  20. MEBEVERINE [Suspect]
     Active Substance: MEBEVERINE
     Dosage: 200 MG DAILY
     Route: 065
  21. ESCITALOPRAM [Suspect]
     Active Substance: ESCITALOPRAM OXALATE
     Dosage: 10 MG DAILY
     Route: 065
  22. FUROSEMIDE [Suspect]
     Active Substance: FUROSEMIDE
     Dosage: 20 MG DAILY
     Route: 065
  23. BUDESONIDE [Suspect]
     Active Substance: BUDESONIDE
     Dosage: 1 DF QID / 8 DF Q8WK
     Route: 048
     Dates: start: 200707
  24. GABAPENTIN [Suspect]
     Active Substance: GABAPENTIN
     Dosage: 300 MG TID
     Route: 065
  25. LEVOTHYROXINE [Suspect]
     Active Substance: LEVOTHYROXINE
     Dosage: 100 MG DAILY
     Route: 065
  26. CHOLECALCIFEROL [Suspect]
     Active Substance: CHOLECALCIFEROL
     Route: 065
  27. METFORMIN [Suspect]
     Active Substance: METFORMIN HYDROCHLORIDE
     Dosage: 500 MG BID
     Route: 065
  28. OXYCODONE [Suspect]
     Active Substance: OXYCODONE
     Route: 065
  29. ACETAMINOPHEN [Suspect]
     Active Substance: ACETAMINOPHEN
     Dosage: 500 MG QID
     Route: 065
  30. CALCIUM CARBONATE\CHOLECALCIFEROL [Concomitant]
     Active Substance: CALCIUM CARBONATE\CHOLECALCIFEROL
     Route: 065
  31. HUMIRA [Concomitant]
     Active Substance: ADALIMUMAB
     Dosage: DOSE TEXT: 8 DOSAGE FORM
     Route: 048
     Dates: start: 201707
  32. XELJANZ [Concomitant]
     Active Substance: TOFACITINIB CITRATE
     Dosage: 5 MILLIGRAM, BID
     Route: 048
  33. METHOTREXATE [Concomitant]
     Active Substance: METHOTREXATE
     Route: 065
     Dates: start: 201709, end: 201709
  34. OMEPRAZOLE [Suspect]
     Active Substance: OMEPRAZOLE
     Dosage: 20 MG DAILY
     Route: 065
  35. GAVISCON [Concomitant]
     Active Substance: ALUMINUM HYDROXIDE\MAGNESIUM CARBONATE
     Route: 065
  36. RENNIE [Concomitant]
     Route: 065
  37. ASPIRIN [Concomitant]
     Active Substance: ASPIRIN
     Dosage: DOSE TEXT: ONE TO BE TAKEN IN THE MORNING
     Route: 065
     Dates: start: 20230117
  38. BISOPROLOL [Concomitant]
     Active Substance: BISOPROLOL
     Dosage: DOSE TEXT: TAKE ONE DAILY
     Route: 065
  39. CITALOPRAM [Concomitant]
     Active Substance: CITALOPRAM HYDROBROMIDE
     Dosage: DOSE TEXT: ONE TO BE TAKEN DAILY
     Route: 065
     Dates: start: 20230117
  40. DAPAGLIFLOZIN [Concomitant]
     Active Substance: DAPAGLIFLOZIN
     Dosage: DOSE TEXT: TAKE ONE DAILY
     Route: 065
     Dates: start: 20230316, end: 20230425
  41. LANSOPRAZOLE [Concomitant]
     Active Substance: LANSOPRAZOLE
     Dosage: DOSE TEXT: ONE TABLET IN THE MORNING TO PROTECT THE STOMAC
     Route: 065
     Dates: start: 20230117
  42. LYRICA [Concomitant]
     Active Substance: PREGABALIN
     Dosage: DOSE TEXT: PREGABALIN ONE TO BE TAKEN TWICE A DAY
     Route: 065
     Dates: start: 20230117
  43. ACETAMINOPHEN [Concomitant]
     Active Substance: ACETAMINOPHEN
     Dosage: TAKE ONE OR TWO TABLETS EVERY 4 TO 6 HOURS WHEN...
     Route: 065
     Dates: start: 20230117
  44. RAMIPRIL [Concomitant]
     Active Substance: RAMIPRIL
     Dosage: DOSE TEXT: TAKE ONE DAILY
     Route: 065
     Dates: start: 20230126
  45. ROSUVASTATIN [Suspect]
     Active Substance: ROSUVASTATIN
     Dosage: 10 MG DAILY / DOSE TEXT: UN
     Route: 065
     Dates: start: 20230403
  46. DUTASTERIDE\TAMSULOSIN HYDROCHLORIDE [Concomitant]
     Active Substance: DUTASTERIDE\TAMSULOSIN HYDROCHLORIDE
     Dosage: TAKE ONE DAILY
     Route: 065
     Dates: start: 20230117
  47. BISOPROLOL [Concomitant]
     Active Substance: BISOPROLOL
     Route: 065
  48. AMLODIPINE [Concomitant]
     Active Substance: AMLODIPINE BESYLATE
     Dosage: TAKE ONE DAILY
     Route: 065
     Dates: start: 20220805, end: 20230220
  49. ATORVASTATIN [Concomitant]
     Active Substance: ATORVASTATIN
     Dosage: ONE TO BE TAKEN AT NIGHT
     Route: 065
     Dates: start: 20220628
  50. DORZOLAMIDE [Concomitant]
     Active Substance: DORZOLAMIDE
     Dosage: ONE DROP TWICE DAILY IN THE RIGHT EYE ONLY
     Route: 065
     Dates: start: 20220628
  51. FESOTERODINE FUMARATE [Concomitant]
     Active Substance: FESOTERODINE FUMARATE
     Dosage: TAKE TWO DAILY
     Route: 065
     Dates: start: 20220628
  52. FOLIC ACID [Concomitant]
     Active Substance: FOLIC ACID
     Dosage: TAKE TWO DAILY
     Route: 065
  53. LATANOPROST [Concomitant]
     Active Substance: LATANOPROST
     Dosage: ONE DROP ONCE DAILY IN BOTH EYES
     Route: 065
     Dates: start: 20230412
  54. POLYETHYLENE GLYCOL 3350\POTASSIUM CHLORIDE\SODIUM BICARBONATE\SODIUM [Concomitant]
     Active Substance: POLYETHYLENE GLYCOL 3350\POTASSIUM CHLORIDE\SODIUM BICARBONATE\SODIUM CHLORIDE
     Dosage: TAKE ONE UP TO TWICE A DAY AS REQUIRED
     Route: 065
     Dates: start: 20230412
  55. LATANOPROST [Concomitant]
     Active Substance: LATANOPROST
     Dosage: DOSE TEXT: APPLY ONE DROP ONCE DAILY TO BOTH EYES / DOSE TEXT: TWO SACHET BD
     Route: 065
     Dates: start: 20220628, end: 20230320
  56. FELODIPINE [Suspect]
     Active Substance: FELODIPINE
     Dosage: 2.5 MG BID
     Route: 065
     Dates: start: 20220403, end: 20220403
  57. MOVICOL [Concomitant]
     Active Substance: POLYETHYLENE GLYCOL 3350\POTASSIUM CHLORIDE\SODIUM BICARBONATE\SODIUM CHLORIDE
     Route: 065
  58. NITROFURANTOIN [Concomitant]
     Active Substance: NITROFURANTOIN
     Dosage: DOSE TEXT: TAKE ONE CAPSULE, TWICE DAILY
     Route: 065
     Dates: start: 20230413
  59. RIVAROXABAN [Concomitant]
     Active Substance: RIVAROXABAN
     Dosage: TAKE ONE DAILY
     Route: 065
     Dates: start: 20220628
  60. PARAFFIN [Concomitant]
     Active Substance: PARAFFIN
     Dosage: APPLY THREE TIMES A DAY AS REQUIRED TO DRY SKIN
     Route: 065
     Dates: start: 20230412
  61. BETNOVATE [Concomitant]
     Active Substance: BETAMETHASONE
     Dosage: APPLY TO THE AFFECTED AREA(S) ONCE OR TWICE A DAY
     Route: 065
     Dates: start: 20221220
  62. EMPAGLIFLOZIN [Concomitant]
     Active Substance: EMPAGLIFLOZIN
     Dosage: TAKE ONE TABLET ONCE A DAY
     Route: 065
     Dates: start: 20221220
  63. ESOMEPRAZOLE [Suspect]
     Active Substance: ESOMEPRAZOLE
     Route: 065
     Dates: end: 20230305
  64. DAPAGLIFLOZIN [Suspect]
     Active Substance: DAPAGLIFLOZIN
     Route: 065
     Dates: start: 20230425
  65. CORTIFOAM [Suspect]
     Active Substance: HYDROCORTISONE ACETATE
     Dosage: 8 DF Q8WK / 1 DF DAILY
     Route: 065
     Dates: start: 201707

REACTIONS (55)
  - Accidental overdose [Recovered/Resolved]
  - Rectal haemorrhage [Unknown]
  - Stress [Not Recovered/Not Resolved]
  - Colitis ulcerative [Unknown]
  - Product use in unapproved indication [Unknown]
  - Drug ineffective [Unknown]
  - Intentional product use issue [Not Recovered/Not Resolved]
  - Impaired work ability [Unknown]
  - Off label use [Unknown]
  - Loss of personal independence in daily activities [Unknown]
  - Steroid dependence [Unknown]
  - Rhinitis [Not Recovered/Not Resolved]
  - Bronchiectasis [Unknown]
  - Haematochezia [Unknown]
  - Colitis ulcerative [Unknown]
  - Confusional state [Unknown]
  - Somnolence [Unknown]
  - Gingival pain [Recovered/Resolved with Sequelae]
  - Tubulointerstitial nephritis [Recovering/Resolving]
  - Adverse drug reaction [Unknown]
  - COVID-19 [Recovered/Resolved with Sequelae]
  - Burns second degree [Recovered/Resolved]
  - Catarrh [Not Recovered/Not Resolved]
  - Arthritis [Not Recovered/Not Resolved]
  - Pulmonary embolism [Recovered/Resolved with Sequelae]
  - Parosmia [Not Recovered/Not Resolved]
  - Rash [Unknown]
  - Eczema [Recovered/Resolved]
  - Swollen tongue [Recovered/Resolved]
  - Nightmare [Recovered/Resolved]
  - Systemic lupus erythematosus [Recovered/Resolved with Sequelae]
  - Hypopnoea [Recovered/Resolved with Sequelae]
  - Frequent bowel movements [Unknown]
  - Migraine [Recovering/Resolving]
  - Rash [Not Recovered/Not Resolved]
  - Vertigo [Recovering/Resolving]
  - Tinnitus [Not Recovered/Not Resolved]
  - Cardiac murmur [Recovering/Resolving]
  - Fatigue [Not Recovered/Not Resolved]
  - Pain in extremity [Recovered/Resolved]
  - Abdominal discomfort [Not Recovered/Not Resolved]
  - Cerebrovascular accident [Recovered/Resolved with Sequelae]
  - Depression [Recovered/Resolved]
  - Deep vein thrombosis [Unknown]
  - Dysgeusia [Not Recovered/Not Resolved]
  - Fatigue [Unknown]
  - Pyrexia [Unknown]
  - Pain [Recovered/Resolved]
  - Headache [Recovered/Resolved]
  - Palpitations [Not Recovered/Not Resolved]
  - Medication error [Unknown]
  - Impaired quality of life [Unknown]
  - Condition aggravated [Unknown]
  - Inappropriate schedule of product administration [Not Recovered/Not Resolved]
  - Weight decreased [Unknown]

NARRATIVE: CASE EVENT DATE: 20080101
